FAERS Safety Report 5746631-8 (Version None)
Quarter: 2008Q2

REPORT INFORMATION
  Report Type: 
  Country: None (occurrence: None)
  Receive Date: 20080520
  Receipt Date: 20080508
  Transmission Date: 20081010
  Serious: Yes (Hospitalization)
  Sender: FDA-Public Use
  Company Number: GXKR2008JP04249

PATIENT
  Age: 31 Year
  Sex: Male

DRUGS (3)
  1. CYCLOSPORINE [Suspect]
     Indication: IMMUNOSUPPRESSION
     Dosage: 150 MG, 100 MG,
  2. MYCOPHENOLATE MOFETIL [Suspect]
     Indication: IMMUNOSUPPRESSION
     Dosage: 500 MG,
  3. PREDNISOLONE [Suspect]
     Indication: IMMUNOSUPPRESSION
     Dosage: 6 MG,

REACTIONS (6)
  - ANGIOCENTRIC LYMPHOMA [None]
  - CEREBRAL INFARCTION [None]
  - CLONIC CONVULSION [None]
  - DYSAESTHESIA [None]
  - EPSTEIN-BARR VIRUS INFECTION [None]
  - POST TRANSPLANT LYMPHOPROLIFERATIVE DISORDER [None]
